FAERS Safety Report 14134147 (Version 3)
Quarter: 2018Q1

REPORT INFORMATION
  Report Type: Spontaneous
  Country: IE (occurrence: IE)
  Receive Date: 20171027
  Receipt Date: 20180214
  Transmission Date: 20180508
  Serious: Yes (Other)
  Sender: FDA-Public Use
  Company Number: PHHY2017IE155096

PATIENT
  Sex: Female

DRUGS (2)
  1. TEGRETOL [Suspect]
     Active Substance: CARBAMAZEPINE
     Indication: NEURALGIA
     Dosage: 100 MG, BID
     Route: 048
     Dates: start: 20170908
  2. TEGRETOL [Suspect]
     Active Substance: CARBAMAZEPINE
     Indication: HEADACHE
     Dosage: UNK
     Route: 048

REACTIONS (13)
  - Dysphagia [Unknown]
  - Malaise [Unknown]
  - Hypersensitivity [Unknown]
  - Erythema multiforme [Recovered/Resolved]
  - Sensation of foreign body [Unknown]
  - Ear swelling [Unknown]
  - Hypoaesthesia [Unknown]
  - Dyspnoea [Unknown]
  - Rash pruritic [Unknown]
  - Inappropriate schedule of drug administration [Unknown]
  - Erythema [Unknown]
  - Blister [Recovering/Resolving]
  - Pain in extremity [Unknown]

NARRATIVE: CASE EVENT DATE: 20170908
